FAERS Safety Report 16695997 (Version 3)
Quarter: 2020Q2

REPORT INFORMATION
  Report Type: Report from Study
  Country: JP (occurrence: JP)
  Receive Date: 20190813
  Receipt Date: 20200526
  Transmission Date: 20200713
  Serious: Yes (Hospitalization, Other)
  Sender: FDA-Public Use
  Company Number: JP-ASTELLAS-2019JP012607

PATIENT
  Age: 81 Year
  Sex: Female
  Weight: 52 kg

DRUGS (6)
  1. ASP2215 [Interacting]
     Active Substance: GILTERITINIB
     Route: 048
     Dates: start: 20190627
  2. TAZOBACTAM SODIUM AND PIPERACILLIN SODIUM [Concomitant]
     Active Substance: PIPERACILLIN SODIUM\TAZOBACTAM SODIUM
     Indication: PYREXIA
     Dosage: UNK UNK, UNKNOWN FREQ.
     Route: 065
     Dates: start: 201906
  3. FUROSEMIDE. [Concomitant]
     Active Substance: FUROSEMIDE
     Indication: OEDEMA PERIPHERAL
     Dosage: UNK UNK, UNKNOWN FREQ.
     Route: 065
  4. ASP2215 [Suspect]
     Active Substance: GILTERITINIB
     Indication: ACUTE MYELOID LEUKAEMIA REFRACTORY
     Route: 048
     Dates: start: 20190521, end: 20190626
  5. FUROSEMIDE. [Concomitant]
     Active Substance: FUROSEMIDE
     Indication: SUBCUTANEOUS HAEMATOMA
  6. ITRACONAZOLE. [Interacting]
     Active Substance: ITRACONAZOLE
     Indication: PRODUCT USED FOR UNKNOWN INDICATION
     Dosage: 100 MG/DAY, UNKNOWN FREQ.
     Route: 048
     Dates: start: 20190712, end: 20190718

REACTIONS (10)
  - Hepatic enzyme increased [Recovered/Resolved]
  - Drug interaction [Unknown]
  - Subcutaneous haematoma [Recovered/Resolved]
  - Paraesthesia [Recovered/Resolved]
  - Infection [Recovered/Resolved]
  - Blast cell count increased [Not Recovered/Not Resolved]
  - Blood creatinine increased [Recovered/Resolved]
  - Oedema peripheral [Recovered/Resolved]
  - Dyskinesia [Recovered/Resolved]
  - Hepatic function abnormal [Recovered/Resolved]

NARRATIVE: CASE EVENT DATE: 20190611
